FAERS Safety Report 9498949 (Version 3)
Quarter: 2013Q4

REPORT INFORMATION
  Report Type: Spontaneous
  Country: US (occurrence: US)
  Receive Date: 20130904
  Receipt Date: 20131014
  Transmission Date: 20140711
  Serious: Yes (Hospitalization, Other)
  Sender: FDA-Public Use
  Company Number: US-TEVA-429760USA

PATIENT
  Age: 52 Year
  Sex: Female

DRUGS (5)
  1. PACLITAXEL [Suspect]
     Indication: BREAST CANCER METASTATIC
     Dosage: 80 MG/METERSQUARE
     Route: 042
     Dates: start: 201208, end: 20130429
  2. FAMOTIDINE [Concomitant]
  3. COLECALCIFEROL [Concomitant]
  4. PYRIDOXINE HYDROCHLORIDE [Concomitant]
  5. PROCHLORPERAZINE [Concomitant]
     Dosage: PRN

REACTIONS (2)
  - Pneumonitis [Recovering/Resolving]
  - Hypoxia [Recovered/Resolved]
